FAERS Safety Report 12770764 (Version 1)
Quarter: 2016Q3

REPORT INFORMATION
  Report Type: Spontaneous
  Country: US (occurrence: US)
  Receive Date: 20160919
  Receipt Date: 20160919
  Transmission Date: 20161109
  Serious: No
  Sender: FDA-Public Use
  Company Number: None

PATIENT
  Age: 59 Year
  Sex: Female

DRUGS (1)
  1. TEMOZOLOMIDE CAP 180MG [Suspect]
     Active Substance: TEMOZOLOMIDE
     Indication: METASTASES TO LUNG
     Route: 048

REACTIONS (4)
  - Dizziness [None]
  - Diarrhoea [None]
  - Dehydration [None]
  - Dysstasia [None]

NARRATIVE: CASE EVENT DATE: 20160919
